FAERS Safety Report 9973994 (Version 1)
Quarter: 2014Q1

REPORT INFORMATION
  Report Type: Report from Study
  Country: US (occurrence: US)
  Receive Date: 20140306
  Receipt Date: 20140306
  Transmission Date: 20141002
  Serious: No
  Sender: FDA-Public Use
  Company Number: US-ABBVIE-13P-163-1155254-00

PATIENT
  Sex: Male

DRUGS (1)
  1. HUMIRA [Suspect]
     Indication: CROHN^S DISEASE
     Dates: start: 20130710

REACTIONS (5)
  - Malaise [Recovering/Resolving]
  - Pyrexia [Recovering/Resolving]
  - Joint swelling [Recovering/Resolving]
  - Influenza like illness [Recovering/Resolving]
  - Chest pain [Recovering/Resolving]
